FAERS Safety Report 7429338-0 (Version None)
Quarter: 2011Q2

REPORT INFORMATION
  Report Type: 
  Country: None (occurrence: None)
  Receive Date: 20110421
  Receipt Date: 20110415
  Transmission Date: 20111010
  Serious: Yes (Death)
  Sender: FDA-Public Use
  Company Number: US-AMGEN-USASP2011020399

PATIENT
  Age: 77 Year
  Sex: Female

DRUGS (2)
  1. NPLATE [Suspect]
     Indication: THROMBOCYTOPENIA
     Dosage: UNK
     Dates: start: 20091009, end: 20100524
  2. NPLATE [Suspect]
     Indication: IDIOPATHIC THROMBOCYTOPENIC PURPURA

REACTIONS (1)
  - LUNG NEOPLASM MALIGNANT [None]
